FAERS Safety Report 9173393 (Version 1)
Quarter: 2013Q1

REPORT INFORMATION
  Report Type: Spontaneous
  Country: CA (occurrence: None)
  Receive Date: 20130314
  Receipt Date: 20130314
  Transmission Date: 20140127
  Serious: Yes (Other)
  Sender: FDA-Public Use
  Company Number: 2013P1002933

PATIENT
  Age: 10 Year
  Sex: Female
  Weight: 11.4 kg

DRUGS (7)
  1. VALPROIC ACID [Suspect]
     Indication: CONVULSION
     Dosage: 125 MG;AM;
  2. VALPROIC ACID [Suspect]
     Indication: DISEASE RECURRENCE
     Dosage: 125 MG;AM;
  3. TOPIRAMATE [Suspect]
     Indication: CONVULSION
     Dosage: 25 MG;AM;
  4. TOPIRAMATE [Suspect]
     Indication: DISEASE RECURRENCE
     Dosage: 25 MG;AM;
  5. CARNITINE [Concomitant]
  6. LANSOPRAZOLE [Concomitant]
  7. CALCIUM CARBONATE [Concomitant]

REACTIONS (10)
  - Blood alkaline phosphatase increased [None]
  - Hypophosphataemia [None]
  - Blood pressure decreased [None]
  - Osteopenia [None]
  - Rickets [None]
  - Nephrocalcinosis [None]
  - Fanconi syndrome [None]
  - Renal tubular acidosis [None]
  - Glycosuria [None]
  - Proteinuria [None]
